FAERS Safety Report 7763906-1 (Version None)
Quarter: 2011Q3

REPORT INFORMATION
  Report Type: 
  Country: None (occurrence: None)
  Receive Date: 20110921
  Receipt Date: 20110909
  Transmission Date: 20111222
  Serious: Yes (Other)
  Sender: FDA-Public Use
  Company Number: CA-JNJFOC-20110901935

PATIENT
  Sex: Male
  Weight: 80 kg

DRUGS (3)
  1. HYDROXYZINE [Concomitant]
     Indication: PREMEDICATION
     Route: 048
  2. ACCOLATE [Concomitant]
     Indication: PREMEDICATION
     Route: 048
  3. REMICADE [Suspect]
     Indication: CROHN'S DISEASE
     Dosage: 1ST LOADING DOSE
     Route: 042
     Dates: start: 20110831

REACTIONS (3)
  - HEADACHE [None]
  - DIZZINESS [None]
  - FISTULA [None]
